FAERS Safety Report 9714028 (Version 2)
Quarter: 2013Q4

REPORT INFORMATION
  Report Type: Spontaneous
  Country: US (occurrence: US)
  Receive Date: 20131126
  Receipt Date: 20131126
  Transmission Date: 20140711
  Serious: Yes (Other)
  Sender: FDA-Public Use
  Company Number: US-GILEAD-2008-0018191

PATIENT
  Age: 59 Year
  Sex: Male
  Weight: 94.35 kg

DRUGS (13)
  1. LETAIRIS [Suspect]
     Indication: PULMONARY ARTERIAL HYPERTENSION
     Route: 048
     Dates: start: 20080729, end: 20080915
  2. REVATIO [Concomitant]
     Indication: PULMONARY HYPERTENSION
  3. COREG [Concomitant]
     Indication: CARDIAC FAILURE
  4. DIGOXIN [Concomitant]
     Indication: CARDIAC FAILURE
  5. METFORMIN [Concomitant]
     Indication: DIABETES MELLITUS
  6. KCL [Concomitant]
  7. ALLOPURINOL [Concomitant]
     Indication: GOUT
  8. LASIX [Concomitant]
     Indication: CARDIAC FAILURE
  9. JANUVIA [Concomitant]
     Indication: DIABETES MELLITUS
  10. GLYBURIDE [Concomitant]
     Indication: DIABETES MELLITUS
  11. COUMADIN [Concomitant]
     Indication: ATRIAL FIBRILLATION
  12. QUINAPRIL [Concomitant]
     Indication: GOUT
  13. FERROUS SULFATE [Concomitant]
     Indication: ANAEMIA

REACTIONS (2)
  - Dyspnoea [Recovered/Resolved]
  - Fluid overload [Recovered/Resolved]
